FAERS Safety Report 12954305 (Version 8)
Quarter: 2021Q4

REPORT INFORMATION
  Report Type: Report from Study
  Country: US (occurrence: US)
  Receive Date: 20161118
  Receipt Date: 20211026
  Transmission Date: 20220303
  Serious: Yes (Hospitalization)
  Sender: FDA-Public Use
  Company Number: US-ROCHE-1854277

PATIENT
  Age: 72 Year
  Sex: Female
  Weight: 67 kg

DRUGS (43)
  1. POLATUZUMAB VEDOTIN [Suspect]
     Active Substance: POLATUZUMAB VEDOTIN
     Indication: Follicular lymphoma
     Dosage: ADMINISTERED ON DAY 2 OF CYCLE 1, THEN DAY 1 OF EACH SUBSEQUENT CYCLE FOR UP TO 6 CYCLES?DOSE OF LAS
     Route: 042
     Dates: start: 20160628
  2. RITUXIMAB [Suspect]
     Active Substance: RITUXIMAB
     Indication: Follicular lymphoma
     Dosage: DOSE OF LAST RITUXIMAB ADMINISTERED: 611 MG?DATE OF MOST RECENT DOSE OF RITUXIMAB PRIOR TO EPISODES
     Route: 042
     Dates: start: 20160627
  3. BENDAMUSTINE [Suspect]
     Active Substance: BENDAMUSTINE
     Indication: Follicular lymphoma
     Dosage: DOSE OF LAST BENDAMUSTINE ADMINISTERED: 147 MG?DATE OF MOST RECENT DOSE OF BENDAMUSTINE PRIOR TO EPI
     Route: 042
     Dates: start: 20160628
  4. ALLOPURINOL [Concomitant]
     Active Substance: ALLOPURINOL
     Indication: Hyperuricaemia
     Dates: start: 20160829, end: 20161128
  5. LORAZEPAM [Concomitant]
     Active Substance: LORAZEPAM
     Indication: Insomnia
     Dates: start: 200911
  6. CARVEDILOL [Concomitant]
     Active Substance: CARVEDILOL
     Indication: Hypertension
     Dates: start: 1980
  7. CLONIDINE [Concomitant]
     Active Substance: CLONIDINE
     Indication: Hypertension
     Dates: start: 1980
  8. VALSARTAN [Concomitant]
     Active Substance: VALSARTAN
     Indication: Hypertension
     Dates: start: 1980
  9. ZETIA [Concomitant]
     Active Substance: EZETIMIBE
     Indication: Blood cholesterol increased
     Dates: start: 2016
  10. GEMFIBROZIL [Concomitant]
     Active Substance: GEMFIBROZIL
     Indication: Blood cholesterol increased
     Dates: start: 2016
  11. ACETAMINOPHEN\CODEINE PHOSPHATE [Concomitant]
     Active Substance: ACETAMINOPHEN\CODEINE PHOSPHATE
     Indication: Cough
     Dates: start: 20160615
  12. IBUPROFEN [Concomitant]
     Active Substance: IBUPROFEN
     Indication: Back pain
     Dates: start: 2001
  13. GINGER [Concomitant]
     Active Substance: GINGER
     Dosage: INDICATION REPORTED AS SUPPLEMENT
     Dates: start: 201512
  14. HERBALS\TURMERIC [Concomitant]
     Active Substance: HERBALS\TURMERIC
     Dosage: INDICATION REPORTED AS SUPPLEMENT
     Dates: start: 201501
  15. VITAMIN C [Concomitant]
     Active Substance: ASCORBIC ACID
     Dosage: INDICATION REPORTED AS SUPPLEMENT
     Dates: start: 201603
  16. FRANKINCENSE [Concomitant]
     Dosage: INDICATION REPORTED AS SUPPLEMENT
     Dates: start: 2014
  17. ACYCLOVIR [Concomitant]
     Active Substance: ACYCLOVIR
     Indication: Infection
     Dates: start: 20160627
  18. PROCHLORPERAZINE [Concomitant]
     Active Substance: PROCHLORPERAZINE
     Indication: Nausea
     Dates: start: 20160701
  19. BENADRYL [Concomitant]
     Active Substance: DIPHENHYDRAMINE HYDROCHLORIDE
     Indication: Premedication
     Dates: start: 20160627
  20. FAMOTIDINE [Concomitant]
     Active Substance: FAMOTIDINE
     Indication: Chemotherapy side effect prophylaxis
     Dates: start: 20160627
  21. DEXAMETHASONE [Concomitant]
     Active Substance: DEXAMETHASONE
     Indication: Chemotherapy side effect prophylaxis
     Dates: start: 20160627
  22. ACETAMINOPHEN [Concomitant]
     Active Substance: ACETAMINOPHEN
     Indication: Chemotherapy side effect prophylaxis
     Dates: start: 20160627
  23. ACETAMINOPHEN [Concomitant]
     Active Substance: ACETAMINOPHEN
     Indication: Pyrexia
     Dates: start: 20161114, end: 20161114
  24. HUMAN RED BLOOD CELL [Concomitant]
     Active Substance: HUMAN RED BLOOD CELL
     Indication: Anaemia
     Dates: start: 20161010, end: 20161010
  25. HUMAN RED BLOOD CELL [Concomitant]
     Active Substance: HUMAN RED BLOOD CELL
     Dates: start: 20161109, end: 20161109
  26. CIPROFLOXACIN [Concomitant]
     Active Substance: CIPROFLOXACIN
     Indication: Diarrhoea
     Dates: start: 20161103, end: 20161107
  27. CIPROFLOXACIN [Concomitant]
     Active Substance: CIPROFLOXACIN
     Indication: Colitis
  28. GUAIFENESIN [Concomitant]
     Active Substance: GUAIFENESIN
     Indication: Cough
     Dates: start: 20160627
  29. LEVOFLOXACIN [Concomitant]
     Active Substance: LEVOFLOXACIN
     Indication: Oropharyngeal pain
     Dates: start: 20161010, end: 20161021
  30. AUGMENTIN [Concomitant]
     Active Substance: AMOXICILLIN\CLAVULANATE POTASSIUM
     Indication: Oropharyngeal pain
     Dates: start: 20161010, end: 20161021
  31. FLAGYL [Concomitant]
     Active Substance: METRONIDAZOLE\METRONIDAZOLE HYDROCHLORIDE
     Indication: Diarrhoea
     Dates: start: 20161103, end: 20161113
  32. FLONASE [Concomitant]
     Active Substance: FLUTICASONE PROPIONATE
     Indication: Rhinitis allergic
     Dates: start: 20161021, end: 20161128
  33. POTASSIUM CHLORIDE [Concomitant]
     Active Substance: POTASSIUM CHLORIDE
     Indication: Hypokalaemia
     Dates: start: 20161108, end: 20161116
  34. POTASSIUM CHLORIDE [Concomitant]
     Active Substance: POTASSIUM CHLORIDE
     Dates: start: 20161116, end: 20161116
  35. BACTRIM DS [Concomitant]
     Active Substance: SULFAMETHOXAZOLE\TRIMETHOPRIM
     Indication: Infection
     Dates: start: 20161024, end: 20161108
  36. DOCUSATE SODIUM [Concomitant]
     Active Substance: DOCUSATE SODIUM
     Indication: Constipation
     Dates: start: 20161108
  37. BACITRACIN [Concomitant]
     Active Substance: BACITRACIN
     Indication: Skin abrasion
     Route: 061
     Dates: start: 20161117
  38. BUPROPION [Concomitant]
     Active Substance: BUPROPION
     Indication: Depression
     Dates: start: 20161116
  39. HEPARIN [Concomitant]
     Active Substance: HEPARIN SODIUM
     Indication: Thrombosis
     Dates: start: 20161108, end: 20161108
  40. HEPARIN [Concomitant]
     Active Substance: HEPARIN SODIUM
     Dates: start: 20161115, end: 20161117
  41. ENOXAPARIN [Concomitant]
     Active Substance: ENOXAPARIN
     Indication: Thrombosis
     Dates: start: 20161117, end: 20161117
  42. SODIUM CHLORIDE [Concomitant]
     Active Substance: SODIUM CHLORIDE
     Indication: Hyperuricaemia
     Dates: start: 20160829, end: 20161128
  43. SODIUM CHLORIDE [Concomitant]
     Active Substance: SODIUM CHLORIDE
     Indication: Blood creatinine increased
     Dates: start: 20161010, end: 20161016

REACTIONS (2)
  - Colitis [Recovered/Resolved]
  - Neutropenia [Recovered/Resolved]

NARRATIVE: CASE EVENT DATE: 20161108
